FAERS Safety Report 10717869 (Version 1)
Quarter: 2015Q1

REPORT INFORMATION
  Report Type: Spontaneous
  Country: IT (occurrence: FR)
  Receive Date: 20150116
  Receipt Date: 20150116
  Transmission Date: 20150721
  Serious: Yes (Hospitalization)
  Sender: FDA-Public Use
  Company Number: FR-FRI-1000073649

PATIENT
  Age: 89 Year
  Sex: Male

DRUGS (6)
  1. QUINAPRIL [Suspect]
     Active Substance: QUINAPRIL\QUINAPRIL HYDROCHLORIDE
     Route: 048
     Dates: start: 201409
  2. NEBIVOLOL [Suspect]
     Active Substance: NEBIVOLOL
     Indication: HYPERTENSION
     Dosage: 5 MG
     Route: 048
     Dates: start: 201409
  3. PREVISCAN [Suspect]
     Active Substance: FLUINDIONE
     Route: 048
     Dates: start: 201409
  4. ZOCOR [Suspect]
     Active Substance: SIMVASTATIN
     Route: 048
     Dates: start: 201409
  5. FORLAX [Suspect]
     Active Substance: POLYETHYLENE GLYCOL 4000
     Route: 048
     Dates: start: 201409
  6. MOPRAL [Suspect]
     Active Substance: OMEPRAZOLE SODIUM
     Route: 048
     Dates: start: 201409

REACTIONS (1)
  - Cholestasis [Recovered/Resolved]

NARRATIVE: CASE EVENT DATE: 20141103
